FAERS Safety Report 11616449 (Version 1)
Quarter: 2015Q4

REPORT INFORMATION
  Report Type: Spontaneous
  Country: US (occurrence: US)
  Receive Date: 20151009
  Receipt Date: 20151009
  Transmission Date: 20160304
  Serious: No
  Sender: FDA-Public Use
  Company Number: US-BRISTOL-MYERS SQUIBB COMPANY-BMS-2015-067400

PATIENT
  Age: 26 Year
  Sex: Female

DRUGS (2)
  1. ABILIFY [Suspect]
     Active Substance: ARIPIPRAZOLE
     Indication: SCHIZOAFFECTIVE DISORDER
     Dosage: UNK UNK
     Route: 065
  2. BREXPIPRAZOLE [Suspect]
     Active Substance: BREXPIPRAZOLE
     Indication: SCHIZOAFFECTIVE DISORDER
     Dosage: UNK
     Route: 065
     Dates: start: 201509, end: 201509

REACTIONS (4)
  - Somnolence [Unknown]
  - Hallucination, auditory [Unknown]
  - Drug dose omission [Unknown]
  - Hallucination, visual [Unknown]
